FAERS Safety Report 6507997-4 (Version None)
Quarter: 2009Q4

REPORT INFORMATION
  Report Type: 
  Country: None (occurrence: None)
  Receive Date: 20091221
  Receipt Date: 20091216
  Transmission Date: 20100525
  Serious: Yes (Other)
  Sender: FDA-Public Use
  Company Number: CHPA2009US22682

PATIENT
  Age: 65 Year
  Sex: Female
  Weight: 61.678 kg

DRUGS (4)
  1. MAALOX ADV MAXIMUM STRENGTH ANTACID/ANTIGAS (NCH) [Suspect]
     Indication: GASTROOESOPHAGEAL REFLUX DISEASE
     Dosage: 6 TSP, QID
     Route: 048
     Dates: start: 20091122, end: 20091125
  2. MAALOX ADV MAXIMUM STRENGTH ANTACID/ANTIGAS (NCH) [Suspect]
     Indication: DYSPEPSIA
  3. MAALOX MS TOTAL STOMACH RELIEF (NCH) [Suspect]
     Indication: GASTROOESOPHAGEAL REFLUX DISEASE
     Dosage: 6 TSP, QID
     Route: 048
     Dates: start: 20091123, end: 20091126
  4. MAALOX MS TOTAL STOMACH RELIEF (NCH) [Suspect]
     Indication: DYSPEPSIA

REACTIONS (5)
  - BLOOD PRESSURE SYSTOLIC INCREASED [None]
  - FAECES DISCOLOURED [None]
  - GASTROINTESTINAL ULCER [None]
  - MELAENA [None]
  - OFF LABEL USE [None]
